FAERS Safety Report 7985032-9 (Version None)
Quarter: 2011Q4

REPORT INFORMATION
  Report Type: 
  Country: None (occurrence: None)
  Receive Date: 20111216
  Receipt Date: 20111213
  Transmission Date: 20120403
  Serious: Yes (Other)
  Sender: FDA-Public Use
  Company Number: MX-SANOFI-AVENTIS-2011SA081876

PATIENT
  Age: 33 Year
  Sex: Female
  Weight: 73 kg

DRUGS (5)
  1. FOLIC ACID [Concomitant]
     Indication: VITAMIN SUPPLEMENTATION
     Route: 048
     Dates: start: 20110601
  2. PROGESTERONE [Concomitant]
     Route: 048
     Dates: start: 20110601, end: 20110901
  3. ENOXAPARIN SODIUM [Suspect]
     Indication: THROMBOSIS PROPHYLAXIS
     Route: 058
     Dates: start: 20110601, end: 20110601
  4. ASPIRIN [Concomitant]
     Route: 048
  5. ENOXAPARIN SODIUM [Suspect]
     Route: 058
     Dates: start: 20110601, end: 20110901

REACTIONS (2)
  - ABORTION [None]
  - MATERNAL EXPOSURE DURING PREGNANCY [None]
